FAERS Safety Report 6435348-2 (Version None)
Quarter: 2009Q4

REPORT INFORMATION
  Report Type: 
  Country: None (occurrence: None)
  Receive Date: 20091106
  Receipt Date: 20091023
  Transmission Date: 20100525
  Serious: Yes (Hospitalization)
  Sender: FDA-Public Use
  Company Number: TPA2009A03406

PATIENT
  Age: 56 Year
  Sex: Female
  Weight: 138 kg

DRUGS (5)
  1. ULORIC [Suspect]
     Indication: GOUT
     Dosage: 80 MG
     Dates: start: 20090101
  2. CYMBALTA [Concomitant]
  3. LISINOPRIL [Concomitant]
  4. TYLENOL ES (PARACETAMOL) [Concomitant]
  5. CLINDAMYCIN HCL [Concomitant]

REACTIONS (1)
  - PULMONARY EMBOLISM [None]
